FAERS Safety Report 9695807 (Version 1)
Quarter: 2013Q4

REPORT INFORMATION
  Report Type: Spontaneous
  Country: US (occurrence: US)
  Receive Date: 20131119
  Receipt Date: 20131119
  Transmission Date: 20140711
  Serious: Yes (Other)
  Sender: FDA-Public Use
  Company Number: US-JNJFOC-20131106126

PATIENT
  Age: 73 Year
  Sex: Female
  Weight: 88.4 kg

DRUGS (4)
  1. XARELTO [Suspect]
     Indication: DEEP VEIN THROMBOSIS
     Route: 048
     Dates: start: 201310
  2. METHADONE [Concomitant]
     Indication: PAIN
     Route: 065
  3. VANCOMYCIN [Concomitant]
     Indication: PNEUMONIA
     Route: 065
  4. ZOSYN [Concomitant]
     Indication: PNEUMONIA
     Route: 065

REACTIONS (2)
  - Pulmonary embolism [Unknown]
  - Treatment failure [Unknown]
